FAERS Safety Report 20422857 (Version 1)
Quarter: 2022Q1

REPORT INFORMATION
  Report Type: Spontaneous
  Country: US (occurrence: None)
  Receive Date: 20220203
  Receipt Date: 20220203
  Transmission Date: 20220423
  Serious: Yes (Death, Life-Threatening, Hospitalization)
  Sender: FDA-Public Use
  Company Number: None

PATIENT
  Age: 56 Year
  Sex: Male
  Weight: 106.9 kg

DRUGS (2)
  1. VANCOMYCIN [Suspect]
     Active Substance: VANCOMYCIN
     Indication: Peritonitis
     Route: 033
     Dates: start: 20220125, end: 20220125
  2. 2.5% Dextrose Dialysate Peritoneal Solution [Concomitant]

REACTIONS (9)
  - Pruritus [None]
  - Feeling abnormal [None]
  - Nausea [None]
  - Retching [None]
  - Musculoskeletal stiffness [None]
  - Foaming at mouth [None]
  - Blood pressure increased [None]
  - Heart rate decreased [None]
  - Joint contracture [None]

NARRATIVE: CASE EVENT DATE: 20220125
